FAERS Safety Report 7991829-1 (Version None)
Quarter: 2011Q4

REPORT INFORMATION
  Report Type: 
  Country: None (occurrence: None)
  Receive Date: 20111219
  Receipt Date: 20111216
  Transmission Date: 20120403
  Serious: No
  Sender: FDA-Public Use
  Company Number: US-PFIZER INC-2011306881

PATIENT
  Sex: Male
  Weight: 100 kg

DRUGS (1)
  1. LIPITOR [Suspect]
     Indication: LOW DENSITY LIPOPROTEIN INCREASED
     Dosage: UNK

REACTIONS (3)
  - MYALGIA [None]
  - ARTHROPATHY [None]
  - TENDONITIS [None]
